FAERS Safety Report 22254491 (Version 1)
Quarter: 2023Q2

REPORT INFORMATION
  Report Type: Spontaneous
  Country: US (occurrence: None)
  Receive Date: 20230425
  Receipt Date: 20230425
  Transmission Date: 20230722
  Serious: Yes (Hospitalization)
  Sender: FDA-Public Use
  Company Number: None

PATIENT
  Age: 66 Year
  Sex: Male
  Weight: 70.3 kg

DRUGS (1)
  1. LISOCABTAGENE MARALEUCEL [Suspect]
     Active Substance: LISOCABTAGENE MARALEUCEL
     Indication: B-cell lymphoma
     Dosage: OTHER FREQUENCY : ONCE;?
     Route: 042
     Dates: start: 20230313, end: 20230313

REACTIONS (2)
  - Cytokine release syndrome [None]
  - Immune effector cell-associated neurotoxicity syndrome [None]

NARRATIVE: CASE EVENT DATE: 20230316
